FAERS Safety Report 6212305-2 (Version None)
Quarter: 2009Q2

REPORT INFORMATION
  Report Type: 
  Country: None (occurrence: None)
  Receive Date: 20090529
  Receipt Date: 20090518
  Transmission Date: 20091009
  Serious: Yes (Other)
  Sender: FDA-Public Use
  Company Number: 2009-01981

PATIENT
  Age: 55 Year
  Sex: Male

DRUGS (6)
  1. VELCADE [Suspect]
     Indication: DRUG USE FOR UNKNOWN INDICATION
     Dosage: 1.3 MG/M2; INTRAVENOUS
     Route: 042
     Dates: start: 20090225
  2. DECADRON [Suspect]
     Indication: DRUG USE FOR UNKNOWN INDICATION
     Dosage: 20 MG,
     Dates: start: 20090225
  3. DRAVIT (LEVOFLOXACIN) [Concomitant]
  4. DIFLUCAN [Concomitant]
  5. SULFAMETHOXAZOLE AND TRIMETHOPRIM [Concomitant]
  6. ACYCLOVIR [Concomitant]

REACTIONS (3)
  - ADRENAL INSUFFICIENCY [None]
  - DIARRHOEA [None]
  - HYPOTHERMIA [None]
